FAERS Safety Report 6953788-X (Version None)
Quarter: 2010Q3

REPORT INFORMATION
  Report Type: 
  Country: None (occurrence: None)
  Receive Date: 20100829
  Receipt Date: 20100618
  Transmission Date: 20110219
  Serious: No
  Sender: FDA-Public Use
  Company Number: US-ABBOTT-10P-163-0653655-00

PATIENT
  Sex: Male
  Weight: 65.83 kg

DRUGS (6)
  1. NIASPAN [Suspect]
     Indication: CEREBROVASCULAR ACCIDENT
     Dates: start: 20070101, end: 20070101
  2. NIASPAN [Suspect]
     Dates: start: 20100612, end: 20100618
  3. TRILIPIX [Concomitant]
     Indication: BLOOD CHOLESTEROL INCREASED
  4. VYTORIN [Concomitant]
     Indication: BLOOD CHOLESTEROL INCREASED
  5. ADVAIR DISKUS 100/50 [Concomitant]
     Indication: PRODUCT USED FOR UNKNOWN INDICATION
  6. FUROSEMIDE [Concomitant]
     Indication: CARDIAC FAILURE CONGESTIVE
     Dates: end: 20100601

REACTIONS (6)
  - CYANOSIS [None]
  - ERYTHEMA [None]
  - FLUSHING [None]
  - OEDEMA [None]
  - PRURITUS [None]
  - WEIGHT INCREASED [None]
